FAERS Safety Report 4427711-6 (Version None)
Quarter: 2004Q3

REPORT INFORMATION
  Report Type: 
  Country: None (occurrence: None)
  Receive Date: 20040812
  Receipt Date: 20040805
  Transmission Date: 20050211
  Serious: Yes (Other)
  Sender: FDA-Public Use
  Company Number: 2004-06-2180

PATIENT
  Age: 26 Year
  Sex: Female

DRUGS (2)
  1. NASONEX [Suspect]
     Dosage: NASAL SPRAY
     Route: 045
     Dates: start: 20040126, end: 20040301
  2. BECLOMETHASONE NASAL AEROSOL [Suspect]
     Dosage: PUFF.NARE TID INTRANASAL
     Route: 045
     Dates: start: 20040301

REACTIONS (3)
  - ABORTION SPONTANEOUS [None]
  - DRUG EXPOSURE DURING PREGNANCY [None]
  - PREGNANCY [None]
